FAERS Safety Report 14186907 (Version 1)
Quarter: 2017Q4

REPORT INFORMATION
  Report Type: Spontaneous
  Country: CA (occurrence: CA)
  Receive Date: 20171114
  Receipt Date: 20171114
  Transmission Date: 20180321
  Serious: Yes (Other)
  Sender: FDA-Public Use
  Company Number: CA-AMGEN-CANSP2017169526

PATIENT
  Sex: Male

DRUGS (3)
  1. OXYNEO [Concomitant]
     Active Substance: OXYCODONE
     Dosage: 40 MG, UNK
  2. OXYNEO [Concomitant]
     Active Substance: OXYCODONE
     Dosage: 20 MG, UNK
  3. ENBREL [Suspect]
     Active Substance: ETANERCEPT
     Indication: PSORIATIC ARTHROPATHY
     Dosage: 50 MG, UNK
     Route: 065
     Dates: start: 2016

REACTIONS (5)
  - Impaired healing [Not Recovered/Not Resolved]
  - Adverse drug reaction [Unknown]
  - Irritable bowel syndrome [Unknown]
  - Localised infection [Not Recovered/Not Resolved]
  - Drug effect incomplete [Unknown]
